FAERS Safety Report 5395874-4 (Version None)
Quarter: 2007Q3

REPORT INFORMATION
  Report Type: 
  Country: None (occurrence: None)
  Receive Date: 20070724
  Receipt Date: 20070712
  Transmission Date: 20080115
  Serious: Yes (Other)
  Sender: FDA-Public Use
  Company Number: US-PFIZER INC-2007038249

PATIENT
  Sex: Female
  Weight: 136.1 kg

DRUGS (10)
  1. CHANTIX [Suspect]
     Indication: SMOKING CESSATION THERAPY
  2. NIZATIDINE [Concomitant]
  3. LOVASTATIN [Concomitant]
  4. TRICOR [Concomitant]
  5. BENICAR [Concomitant]
  6. SYNTHROID [Concomitant]
  7. BYETTA [Concomitant]
  8. HUMALOG [Concomitant]
  9. PRANDIN [Concomitant]
  10. ATIVAN [Concomitant]

REACTIONS (6)
  - HYPERVENTILATION [None]
  - INTERVERTEBRAL DISC COMPRESSION [None]
  - INTERVERTEBRAL DISC DISPLACEMENT [None]
  - MUSCLE SPASMS [None]
  - PAIN [None]
  - RESPIRATORY DISORDER [None]
